FAERS Safety Report 5054738-6 (Version None)
Quarter: 2006Q2

REPORT INFORMATION
  Report Type: 
  Country: None (occurrence: None)
  Receive Date: 20060614
  Receipt Date: 20060111
  Transmission Date: 20061013
  Serious: No
  Sender: FDA-Public Use
  Company Number: USA0507101929

PATIENT
  Age: 61 Year
  Sex: Male

DRUGS (6)
  1. CIALIS [Suspect]
     Indication: ERECTILE DYSFUNCTION
     Dosage: 10 MG, ORAL
     Route: 048
     Dates: start: 20050701
  2. COUMADIN [Concomitant]
  3. MIRALAX [Concomitant]
  4. METAMUCIL (GLUCOSE MONOHYDRATE, ISPAGHULA HUSK) [Concomitant]
  5. LIPITOR [Concomitant]
  6. TRICOR [Concomitant]

REACTIONS (1)
  - EJACULATION FAILURE [None]
